FAERS Safety Report 9552075 (Version 1)
Quarter: 2013Q2

REPORT INFORMATION
  Report Type: Spontaneous
  Country: US (occurrence: None)
  Receive Date: 20130524
  Receipt Date: 20130524
  Transmission Date: 20140414
  Serious: No
  Sender: FDA-Public Use
  Company Number: PHEH2013US000729

PATIENT
  Age: 49 Year
  Sex: Female
  Weight: 88.9 kg

DRUGS (2)
  1. GILENYA [Suspect]
     Indication: MULTIPLE SCLEROSIS
     Route: 048
     Dates: start: 20121227
  2. FLUOXETINE (FLUOXETINE) [Concomitant]

REACTIONS (14)
  - Muscle tightness [None]
  - Balance disorder [None]
  - Insomnia [None]
  - Speech disorder [None]
  - Pain [None]
  - Pain in extremity [None]
  - Vision blurred [None]
  - Cognitive disorder [None]
  - Constipation [None]
  - Hypoaesthesia [None]
  - Multiple sclerosis relapse [None]
  - Muscular weakness [None]
  - Visual impairment [None]
  - Paraesthesia [None]
